FAERS Safety Report 6648385-X (Version None)
Quarter: 2010Q1

REPORT INFORMATION
  Report Type: 
  Country: None (occurrence: None)
  Receive Date: 20100324
  Receipt Date: 20100315
  Transmission Date: 20100710
  Serious: Yes (Death, Other)
  Sender: FDA-Public Use
  Company Number: US-BAYER-200943563NA

PATIENT
  Age: 43 Year
  Sex: Male

DRUGS (3)
  1. BETASERON [Suspect]
     Indication: RELAPSING-REMITTING MULTIPLE SCLEROSIS
     Route: 058
     Dates: start: 19940926, end: 20090716
  2. CELEXA [Concomitant]
     Route: 065
  3. MIRAPEX [Concomitant]
     Route: 065

REACTIONS (1)
  - COMPLETED SUICIDE [None]
